FAERS Safety Report 6491755-3 (Version None)
Quarter: 2009Q4

REPORT INFORMATION
  Report Type: 
  Country: None (occurrence: None)
  Receive Date: 20091210
  Receipt Date: 20091125
  Transmission Date: 20100525
  Serious: Yes (Other)
  Sender: FDA-Public Use
  Company Number: 008172

PATIENT
  Age: 7 Month
  Sex: Male

DRUGS (5)
  1. BUSULFEX [Suspect]
     Indication: STEM CELL TRANSPLANT
     Dosage: Q6HR, INTRAVENOUS
     Route: 042
  2. CYCLOPHOSPHAMIDE [Concomitant]
  3. METHYLPREDNISOLONE [Concomitant]
  4. ANTI-THYMOCYTE GLOBULIN NOS [Concomitant]
  5. CYCLOSPORINE [Concomitant]

REACTIONS (4)
  - CITROBACTER SEPSIS [None]
  - ENTEROCOCCAL SEPSIS [None]
  - RESPIRATORY FAILURE [None]
  - RESPIRATORY SYNCYTIAL VIRUS BRONCHIOLITIS [None]
